FAERS Safety Report 9521541 (Version 1)
Quarter: 2013Q1

REPORT INFORMATION
  Report Type: Spontaneous
  Country: US (occurrence: None)
  Receive Date: 20130305
  Receipt Date: 20130305
  Transmission Date: 20140127
  Serious: Yes (Other)
  Sender: FDA-Public Use
  Company Number: 163-21880-12073307

PATIENT
  Age: 83 Week
  Sex: Male

DRUGS (11)
  1. REVLIMID (LENALIDOMIDE) (CAPSULES) [Suspect]
     Indication: PLASMA CELL MYELOMA
     Route: 048
     Dates: start: 20110416, end: 20120331
  2. VICODIN (VICODIN) (TABLETS) [Concomitant]
  3. ZOMETA (ZOLEDRONIC ACID) [Concomitant]
  4. OMEPRAZOLE (OMEPRAZOLE) (CAPSULES) [Concomitant]
  5. MIRALAX (MACROGOL) (POWDER) [Concomitant]
  6. MORPHINE SULFATE (MORPHINE SULFATE) (TABLETS) [Concomitant]
  7. BENICAR (OLMESARTAN MEDOXOMIL) (TABLETS) [Concomitant]
  8. SIMVASTATIN [Concomitant]
  9. COLACE (DOCUSATE SODIUM) (CAPSULES) [Concomitant]
  10. COUMADIN (WARFARIN SODIUM) (TABLETS) [Concomitant]
  11. DEXAMETHASONE (DEXAMETHASONE) (TABLETS) [Concomitant]

REACTIONS (1)
  - Therapeutic response decreased [None]
